FAERS Safety Report 23543670 (Version 2)
Quarter: 2024Q1

REPORT INFORMATION
  Report Type: Spontaneous
  Country: BR (occurrence: BR)
  Receive Date: 20240220
  Receipt Date: 20240222
  Transmission Date: 20240410
  Serious: Yes (Other)
  Sender: FDA-Public Use
  Company Number: BR-MYLANLABS-2024M1015297

PATIENT
  Weight: 55 kg

DRUGS (2)
  1. NORVASC [Suspect]
     Active Substance: AMLODIPINE BESYLATE
     Indication: Hypertension
     Dosage: 5 MILLIGRAM, QD
     Route: 048
     Dates: start: 2024
  2. METOPROLOL SUCCINATE [Concomitant]
     Active Substance: METOPROLOL SUCCINATE
     Indication: Hypertension
     Dosage: 25 MILLIGRAM, BID
     Route: 065

REACTIONS (7)
  - Carotid artery disease [Not Recovered/Not Resolved]
  - Joint swelling [Recovered/Resolved]
  - Osteoporosis [Not Recovered/Not Resolved]
  - Peripheral swelling [Recovered/Resolved]
  - Product quality issue [Unknown]
  - Poor quality product administered [Unknown]
  - Suspected counterfeit product [Unknown]

NARRATIVE: CASE EVENT DATE: 20240101
